FAERS Safety Report 8781344 (Version 1)
Quarter: 2012Q4

REPORT INFORMATION
  Report Type: 
  Country: CN (occurrence: CN)
  Receive Date: 20120913
  Receipt Date: 20120913
  Transmission Date: 20130627
  Serious: Yes (Other)
  Sender: FDA-Public Use
  Company Number: CN-PFIZER INC-2012196292

PATIENT

DRUGS (1)
  1. ZELDOX [Suspect]
     Dosage: 30mg
     Route: 064

REACTIONS (3)
  - Maternal exposure timing unspecified [Unknown]
  - Hydrocephalus [Unknown]
  - Oedema [Unknown]
